FAERS Safety Report 9969382 (Version 1)
Quarter: 2014Q1

REPORT INFORMATION
  Report Type: Spontaneous
  Country: CA (occurrence: CA)
  Receive Date: 20140306
  Receipt Date: 20140306
  Transmission Date: 20141002
  Serious: Yes (Hospitalization, Other)
  Sender: FDA-Public Use
  Company Number: CA-AMGEN-CANSP2014015453

PATIENT
  Age: 67 Year
  Sex: Female

DRUGS (1)
  1. ENBREL [Suspect]
     Indication: RHEUMATOID ARTHRITIS
     Dosage: 25 MG, 2 TIMES/WK
     Route: 065
     Dates: start: 20040501

REACTIONS (7)
  - Intestinal perforation [Unknown]
  - Investigation [Unknown]
  - Cardiac failure congestive [Not Recovered/Not Resolved]
  - Abdominal wound dehiscence [Unknown]
  - Impaired healing [Unknown]
  - Mobility decreased [Unknown]
  - Infection [Unknown]
